FAERS Safety Report 6213245-5 (Version None)
Quarter: 2009Q2

REPORT INFORMATION
  Report Type: 
  Country: None (occurrence: None)
  Receive Date: 20090603
  Receipt Date: 20090528
  Transmission Date: 20091009
  Serious: Yes (Hospitalization)
  Sender: FDA-Public Use
  Company Number: PHHY2009BR20911

PATIENT
  Age: 31 Year
  Sex: Female
  Weight: 72 kg

DRUGS (4)
  1. FORASEQ [Suspect]
     Indication: ASTHMA
     Dosage: 12/400 MCG, 2 INHALATIONS OF EACH ACTIVE INGREDIENT PER DAY
  2. FORASEQ [Suspect]
     Dosage: UNK
  3. ATROVENT [Concomitant]
     Indication: ASTHMA
     Dosage: 0.25/ML, NEBULIZATION WITH 25 DROPS,
  4. HYDROXYZINE [Concomitant]
     Indication: ASTHMA
     Dosage: 1 DF, Q12H
     Route: 048

REACTIONS (6)
  - BLOOD IMMUNOGLOBULIN E INCREASED [None]
  - DRUG INEFFECTIVE [None]
  - DYSPNOEA [None]
  - FATIGUE [None]
  - NASOPHARYNGITIS [None]
  - WHEEZING [None]
